APPROVED DRUG PRODUCT: M-ZOLE 7 DUAL PACK
Active Ingredient: MICONAZOLE NITRATE
Strength: 2%,100MG
Dosage Form/Route: CREAM, SUPPOSITORY;TOPICAL, VAGINAL
Application: A074586 | Product #001
Applicant: ACTAVIS MID ATLANTIC LLC
Approved: Jul 17, 1997 | RLD: No | RS: No | Type: DISCN